FAERS Safety Report 7971779-7 (Version None)
Quarter: 2011Q4

REPORT INFORMATION
  Report Type: 
  Country: None (occurrence: None)
  Receive Date: 20111212
  Receipt Date: 20111205
  Transmission Date: 20120403
  Serious: Yes (Death)
  Sender: FDA-Public Use
  Company Number: FR-CEPHALON-2011006149

PATIENT
  Age: 80 Year
  Sex: Female

DRUGS (2)
  1. BENDAMUSTINE HCL [Suspect]
     Indication: MANTLE CELL LYMPHOMA
     Route: 041
  2. MABTHERA [Suspect]
     Indication: MANTLE CELL LYMPHOMA

REACTIONS (3)
  - LUNG DISORDER [None]
  - BONE MARROW FAILURE [None]
  - SEPSIS [None]
